FAERS Safety Report 5924459-3 (Version None)
Quarter: 2008Q4

REPORT INFORMATION
  Report Type: 
  Country: None (occurrence: None)
  Receive Date: 20081020
  Receipt Date: 20081010
  Transmission Date: 20090506
  Serious: No
  Sender: FDA-Public Use
  Company Number: US-B.I. PHARMACEUTICALS,INC./RIDGEFIELD-2008-BP-13908BP

PATIENT
  Age: 81 Year
  Sex: Male
  Weight: 68 kg

DRUGS (6)
  1. MIRAPEX [Suspect]
     Indication: RESTLESS LEGS SYNDROME
     Dosage: .25MG
     Dates: start: 20070729
  2. MIRAPEX [Suspect]
     Indication: DEMENTIA ALZHEIMER'S TYPE
  3. ARICEPT [Concomitant]
     Indication: DEMENTIA ALZHEIMER'S TYPE
     Route: 048
  4. ALLOPURINOL [Concomitant]
  5. ASA-21 [Concomitant]
  6. LIPITOR [Concomitant]

REACTIONS (2)
  - CONDITION AGGRAVATED [None]
  - HALLUCINATION [None]
